FAERS Safety Report 7990982-3 (Version None)
Quarter: 2011Q4

REPORT INFORMATION
  Report Type: 
  Country: None (occurrence: None)
  Receive Date: 20111219
  Receipt Date: 20111212
  Transmission Date: 20120403
  Serious: Yes (Life-Threatening, Hospitalization)
  Sender: FDA-Public Use
  Company Number: DE-ROCHE-1022172

PATIENT
  Sex: Male

DRUGS (1)
  1. COPEGUS [Suspect]
     Indication: HEPATITIS C
     Dates: start: 20111202

REACTIONS (6)
  - CARDIOVASCULAR DISORDER [None]
  - ANXIETY [None]
  - BREAST PAIN [None]
  - DYSPNOEA [None]
  - PERIPHERAL COLDNESS [None]
  - BREAST DISCOMFORT [None]
